FAERS Safety Report 20498638 (Version 3)
Quarter: 2023Q2

REPORT INFORMATION
  Report Type: Report from Study
  Country: DE (occurrence: DE)
  Receive Date: 20220222
  Receipt Date: 20230630
  Transmission Date: 20230721
  Serious: Yes (Other)
  Sender: FDA-Public Use
  Company Number: DE-CELLTRION INC.-2018DE021987

PATIENT

DRUGS (22)
  1. TRASTUZUMAB [Suspect]
     Active Substance: TRASTUZUMAB
     Indication: Breast cancer
     Dosage: 448 MG, CYCLIC
     Route: 042
     Dates: start: 20180529, end: 20180529
  2. TRASTUZUMAB [Suspect]
     Active Substance: TRASTUZUMAB
     Dosage: 336 MG, CYCLIC
     Route: 042
     Dates: start: 20180619, end: 20180619
  3. TRASTUZUMAB [Suspect]
     Active Substance: TRASTUZUMAB
     Dosage: 336 MG
     Route: 042
     Dates: start: 20180710, end: 20180710
  4. TRASTUZUMAB [Suspect]
     Active Substance: TRASTUZUMAB
     Dosage: 336 MG
     Route: 042
     Dates: start: 20180821, end: 20180821
  5. TRASTUZUMAB [Suspect]
     Active Substance: TRASTUZUMAB
     Dosage: ON 21/AUG/2018, SHE RECEIVED LAST ADMINISTRATION PRIOR TO ADVERSE EVENT.
     Route: 041
     Dates: start: 20180619, end: 20180710
  6. TRASTUZUMAB [Suspect]
     Active Substance: TRASTUZUMAB
     Dosage: ON 21/AUG/2018, SHE RECEIVED LAST ADMINISTRATION PRIOR TO ADVERSE EVENT.
     Route: 041
     Dates: start: 20180619, end: 20180710
  7. TRASTUZUMAB [Suspect]
     Active Substance: TRASTUZUMAB
     Dosage: 336 MG
     Route: 041
     Dates: start: 20180619, end: 20180731
  8. TRASTUZUMAB [Suspect]
     Active Substance: TRASTUZUMAB
     Dosage: 336 MG
     Route: 041
     Dates: start: 20180619, end: 20180731
  9. TRASTUZUMAB [Suspect]
     Active Substance: TRASTUZUMAB
     Indication: Breast cancer
     Dosage: 448 MG, CYCLIC
     Route: 042
     Dates: start: 20180529
  10. TRASTUZUMAB [Suspect]
     Active Substance: TRASTUZUMAB
     Dosage: 336 MG, CYCLIC
     Route: 042
     Dates: start: 20180710
  11. TRASTUZUMAB [Suspect]
     Active Substance: TRASTUZUMAB
     Dosage: 336 MG, DATE OF MOST RECENT DOSE OF TRASTUZUMAB (336 MG) PRIOR TO SAE ONSET: 10/JUL/2018
     Route: 042
     Dates: start: 20180619, end: 20180710
  12. PERTUZUMAB [Suspect]
     Active Substance: PERTUZUMAB
     Indication: Breast cancer
     Dosage: 840 MG, CYCLIC
     Route: 065
     Dates: start: 20180529, end: 20180529
  13. PERTUZUMAB [Suspect]
     Active Substance: PERTUZUMAB
     Dosage: 420 MG, CYCLIC
     Route: 065
     Dates: start: 20180619
  14. PERTUZUMAB [Suspect]
     Active Substance: PERTUZUMAB
     Dosage: 420 MG
     Route: 065
     Dates: start: 20180821
  15. PERTUZUMAB [Suspect]
     Active Substance: PERTUZUMAB
     Dosage: 840 MG, CYCLIC
     Route: 065
     Dates: start: 20180529, end: 20180529
  16. PERTUZUMAB [Suspect]
     Active Substance: PERTUZUMAB
     Dosage: 420 MG, CYCLIC
     Route: 065
     Dates: start: 20180619
  17. PERTUZUMAB [Suspect]
     Active Substance: PERTUZUMAB
     Dosage: LAST ADMINISTRATION OF PERTUZUMAB PRIOR TO THE EVENT WAS ON 21/AUG/2018
     Route: 065
     Dates: start: 20180619
  18. PERTUZUMAB [Suspect]
     Active Substance: PERTUZUMAB
     Dosage: 420 MG
     Route: 042
     Dates: start: 20180529
  19. PERTUZUMAB [Suspect]
     Active Substance: PERTUZUMAB
     Dosage: 420 MG DATE OF MOST RECENT DOSE OF PERTUZUMAB (420 MG) PRIOR TO SAE ONSET: 10/JUL/2018
     Route: 042
     Dates: start: 20180619, end: 20230523
  20. DOCETAXEL [Suspect]
     Active Substance: DOCETAXEL
     Indication: Breast cancer
     Dosage: 152 MG (MOST RECENT DOSE OF DOCETAXEL PRIOE TO SAE: 10/JUL/2018)
     Route: 065
     Dates: start: 20180619, end: 20180821
  21. DOCETAXEL [Suspect]
     Active Substance: DOCETAXEL
     Dosage: 114 MG
     Route: 065
     Dates: start: 20180529
  22. DOCETAXEL [Suspect]
     Active Substance: DOCETAXEL
     Dosage: LAST ADMINISTRATION OF DOCETAXEL PRIOR TO THE EVENT WAS ON 21/AUG/2018
     Route: 065
     Dates: start: 20180619

REACTIONS (6)
  - Oedema peripheral [Recovered/Resolved]
  - Soft tissue infection [Recovering/Resolving]
  - Mastitis [Not Recovered/Not Resolved]
  - Polyneuropathy [Not Recovered/Not Resolved]
  - Fatigue [Recovered/Resolved]
  - Lower respiratory tract infection [Recovered/Resolved]

NARRATIVE: CASE EVENT DATE: 20180611
